FAERS Safety Report 5345597-2 (Version None)
Quarter: 2007Q2

REPORT INFORMATION
  Report Type: 
  Country: None (occurrence: None)
  Receive Date: 20070605
  Receipt Date: 20060607
  Transmission Date: 20071010
  Serious: No
  Sender: FDA-Public Use
  Company Number: US-ASTRAZENECA-2006UW11885

PATIENT
  Age: 73 Year
  Sex: Female

DRUGS (4)
  1. PRILOSEC [Suspect]
     Route: 048
  2. BENICAR [Concomitant]
  3. XANAX [Concomitant]
  4. MULTIVITAMIN [Concomitant]

REACTIONS (2)
  - DIARRHOEA [None]
  - DYSPEPSIA [None]
